FAERS Safety Report 9028263 (Version 1)
Quarter: 2013Q1

REPORT INFORMATION
  Report Type: Spontaneous
  Country: US (occurrence: None)
  Receive Date: 20130115
  Receipt Date: 20130115
  Transmission Date: 20140127
  Serious: No
  Sender: FDA-Public Use
  Company Number: None

PATIENT
  Sex: Female
  Weight: 74.84 kg

DRUGS (1)
  1. JANUVIA [Suspect]
     Indication: TYPE 2 DIABETES MELLITUS
     Dosage: 1 1 P D MOUTH
     Route: 048
     Dates: start: 20110822, end: 20110915

REACTIONS (3)
  - Tongue disorder [None]
  - Glossodynia [None]
  - Swollen tongue [None]
